FAERS Safety Report 24784033 (Version 1)
Quarter: 2024Q4

REPORT INFORMATION
  Report Type: Spontaneous
  Country: CA (occurrence: CA)
  Receive Date: 20241227
  Receipt Date: 20241227
  Transmission Date: 20250114
  Serious: Yes (Death, Other)
  Sender: SANOFI AVENTIS
  Company Number: CA-SA-2024SA381882

PATIENT
  Age: 80 Year
  Sex: Male

DRUGS (3)
  1. CLOPIDOGREL BISULFATE [Suspect]
     Active Substance: CLOPIDOGREL BISULFATE
     Dosage: UNK
  2. ASPIRIN [Suspect]
     Active Substance: ASPIRIN
     Dosage: UNK
  3. APIXABAN [Suspect]
     Active Substance: APIXABAN
     Dosage: 2.5 MG, BID

REACTIONS (5)
  - Cardiac failure acute [Fatal]
  - Gastrointestinal haemorrhage [Fatal]
  - Pneumonia [Fatal]
  - Pulmonary alveolar haemorrhage [Fatal]
  - Labelled drug-drug interaction issue [Fatal]
